FAERS Safety Report 10883420 (Version 2)
Quarter: 2015Q2

REPORT INFORMATION
  Report Type: Spontaneous
  Country: GB (occurrence: GB)
  Receive Date: 20150303
  Receipt Date: 20150410
  Transmission Date: 20150821
  Serious: Yes (Other)
  Sender: FDA-Public Use
  Company Number: GB-BAXTER-2015BAX010684

PATIENT
  Age: 83 Year
  Sex: Male

DRUGS (2)
  1. SODIUM CHLORIDE 0.9% INTRAVENOUS INFUSION BP [Suspect]
     Active Substance: SODIUM CHLORIDE
     Indication: INCOHERENT
     Route: 040
     Dates: start: 20150221
  2. SODIUM CHLORIDE 0.9% INTRAVENOUS INFUSION BP [Suspect]
     Active Substance: SODIUM CHLORIDE
     Indication: HYPOTENSION
     Route: 042
     Dates: start: 20150221

REACTIONS (3)
  - Vomiting [Recovered/Resolved]
  - Oxygen saturation decreased [Recovered/Resolved]
  - Haemorrhage [Unknown]

NARRATIVE: CASE EVENT DATE: 20150221
